FAERS Safety Report 13346742 (Version 1)
Quarter: 2017Q1

REPORT INFORMATION
  Report Type: Spontaneous
  Country: US (occurrence: US)
  Receive Date: 20170317
  Receipt Date: 20170317
  Transmission Date: 20170428
  Serious: Yes (Death, Other)
  Sender: FDA-Public Use
  Company Number: US-BAXTER-2017BAX011400

PATIENT
  Age: 84 Year
  Sex: Male
  Weight: 88.3 kg

DRUGS (10)
  1. AMIODARONE [Suspect]
     Active Substance: AMIODARONE
     Indication: PRODUCT USED FOR UNKNOWN INDICATION
     Route: 040
     Dates: start: 20150926
  2. 5% DEXTROSE INJECTION, USP [Suspect]
     Active Substance: DEXTROSE
     Indication: MEDICATION DILUTION
     Route: 042
     Dates: start: 20150926
  3. 5% DEXTROSE INJECTION, USP [Suspect]
     Active Substance: DEXTROSE
     Route: 042
     Dates: start: 20150926
  4. 5% DEXTROSE INJECTION, USP [Suspect]
     Active Substance: DEXTROSE
     Route: 042
     Dates: start: 20150927
  5. 5% DEXTROSE INJECTION, USP [Suspect]
     Active Substance: DEXTROSE
     Route: 042
     Dates: start: 20150926
  6. 5% DEXTROSE INJECTION, USP [Suspect]
     Active Substance: DEXTROSE
     Route: 042
     Dates: start: 20150927
  7. AMIODARONE [Suspect]
     Active Substance: AMIODARONE
     Route: 042
     Dates: start: 20150926
  8. AMIODARONE [Suspect]
     Active Substance: AMIODARONE
     Route: 042
     Dates: start: 20150927
  9. AMIODARONE [Suspect]
     Active Substance: AMIODARONE
     Route: 042
     Dates: start: 20150926
  10. AMIODARONE [Suspect]
     Active Substance: AMIODARONE
     Route: 042
     Dates: start: 20150927

REACTIONS (13)
  - Shock [Fatal]
  - Multiple organ dysfunction syndrome [Fatal]
  - Dyspnoea [Unknown]
  - Unresponsive to stimuli [Not Recovered/Not Resolved]
  - Overdose [Unknown]
  - Renal tubular necrosis [Unknown]
  - Acidosis [Unknown]
  - Pallor [Unknown]
  - Peripheral coldness [Unknown]
  - Hypotension [Unknown]
  - Pulse absent [Not Recovered/Not Resolved]
  - Device infusion issue [Unknown]
  - Critical illness [Unknown]

NARRATIVE: CASE EVENT DATE: 20150927
